FAERS Safety Report 8889098 (Version 2)
Quarter: 2012Q4

REPORT INFORMATION
  Report Type: 
  Country: US (occurrence: US)
  Receive Date: 20121106
  Receipt Date: 20121121
  Transmission Date: 20130627
  Serious: Yes (Death)
  Sender: FDA-Public Use
  Company Number: US-GILEAD-2012-0064198

PATIENT
  Sex: Female

DRUGS (8)
  1. LETAIRIS [Suspect]
     Indication: PULMONARY ARTERIAL HYPERTENSION
     Dosage: 10 mg, QD
     Route: 048
     Dates: start: 20091230
  2. REVATIO [Concomitant]
  3. TYVASO [Concomitant]
  4. LOSARTAN [Concomitant]
  5. FISH OIL [Concomitant]
  6. VYTORIN [Concomitant]
  7. OMEPRAZOLE [Concomitant]
  8. AMLODIPINE [Concomitant]

REACTIONS (1)
  - Pulmonary arterial hypertension [Fatal]
